FAERS Safety Report 5819002-3 (Version None)
Quarter: 2008Q3

REPORT INFORMATION
  Report Type: 
  Country: None (occurrence: None)
  Receive Date: 20080717
  Receipt Date: 20080708
  Transmission Date: 20090109
  Serious: Yes (Death)
  Sender: FDA-Public Use
  Company Number: GXKR2006GB07560

PATIENT
  Age: 48 Year
  Sex: Male
  Weight: 118 kg

DRUGS (7)
  1. SERTRALINE [Suspect]
     Indication: DEPRESSION
     Dosage: 100 MG, ORAL
     Route: 048
     Dates: start: 20060314, end: 20060728
  2. ATORVASTATIN CALCIUM [Suspect]
  3. QUETIAPINE FUMARATE [Suspect]
     Dosage: ORAL
     Route: 048
  4. DRUG THERAPY NOS (DRUG THERAPY NOS) [Suspect]
  5. ARIPIPRAZOLE (ARIPIPRAZOLE) SUSPENSION FOR INJECTION [Concomitant]
  6. ATORVASTATIN CALCIUM [Concomitant]
  7. QUETIAPINE FUMARATE [Concomitant]

REACTIONS (6)
  - ACUTE HEPATIC FAILURE [None]
  - ALCOHOL USE [None]
  - HEPATIC STEATOSIS [None]
  - OEDEMA [None]
  - OVERDOSE [None]
  - PULMONARY CONGESTION [None]
